FAERS Safety Report 18368510 (Version 5)
Quarter: 2021Q1

REPORT INFORMATION
  Report Type: Spontaneous
  Country: US (occurrence: US)
  Receive Date: 20201010
  Receipt Date: 20210315
  Transmission Date: 20210419
  Serious: Yes (Other)
  Sender: FDA-Public Use
  Company Number: US-TAKEDA-2020TUS041853

PATIENT
  Sex: Male

DRUGS (14)
  1. REVLIMID [Suspect]
     Active Substance: LENALIDOMIDE
     Indication: PRODUCT USED FOR UNKNOWN INDICATION
     Dosage: UNK
     Route: 065
  2. POMALYST [Concomitant]
     Active Substance: POMALIDOMIDE
     Dosage: UNK
     Route: 065
  3. CALCIUM [Concomitant]
     Active Substance: CALCIUM
     Dosage: UNK
     Route: 065
  4. OXYCODONE [Concomitant]
     Active Substance: OXYCODONE
     Dosage: UNK
     Route: 065
  5. KYPROLIS [Concomitant]
     Active Substance: CARFILZOMIB
     Dosage: UNK
  6. STRONTIUM [Concomitant]
     Active Substance: STRONTIUM
     Dosage: UNK
     Route: 065
  7. ASPIRIN [ACETYLSALICYLIC ACID] [Concomitant]
     Active Substance: ASPIRIN
     Dosage: UNK
     Route: 065
  8. IRON [Concomitant]
     Active Substance: IRON
     Dosage: UNK
     Route: 065
  9. ZOLEDRONIC [Concomitant]
     Active Substance: ZOLEDRONIC ACID
     Dosage: UNK
     Route: 065
  10. NINLARO [Suspect]
     Active Substance: IXAZOMIB CITRATE
     Indication: PLASMA CELL MYELOMA
     Dosage: 3 MILLIGRAM, 1/WEEK
     Route: 048
     Dates: start: 20200930
  11. TYLENOL [Concomitant]
     Active Substance: ACETAMINOPHEN
     Dosage: UNK
     Route: 065
  12. DEXAMETHASONE. [Concomitant]
     Active Substance: DEXAMETHASONE
     Dosage: UNK
     Route: 065
  13. GLUTATHIONE [Concomitant]
     Active Substance: GLUTATHIONE
     Dosage: UNK
     Route: 065
  14. NINLARO [Suspect]
     Active Substance: IXAZOMIB CITRATE
     Dosage: 3 MILLIGRAM
     Route: 048
     Dates: start: 20201001

REACTIONS (10)
  - Hepatic enzyme increased [Unknown]
  - Illness [Unknown]
  - Nausea [Unknown]
  - Chills [Unknown]
  - Product dose omission issue [Unknown]
  - Abdominal discomfort [Unknown]
  - Plasma cell myeloma [Unknown]
  - Vomiting [Unknown]
  - Pain [Unknown]
  - Night sweats [Unknown]

NARRATIVE: CASE EVENT DATE: 2020
